FAERS Safety Report 19950774 (Version 2)
Quarter: 2021Q4

REPORT INFORMATION
  Report Type: Report from Study
  Country: US (occurrence: US)
  Receive Date: 20211013
  Receipt Date: 20211115
  Transmission Date: 20220303
  Serious: Yes (Other)
  Sender: FDA-Public Use
  Company Number: US-UCBSA-2021042019

PATIENT
  Age: 63 Year
  Sex: Female

DRUGS (3)
  1. CERTOLIZUMAB PEGOL [Suspect]
     Active Substance: CERTOLIZUMAB PEGOL
     Indication: Rheumatoid arthritis
     Dosage: 400 MILLIGRAM, EV 2 WEEKS(QOW)
     Route: 058
     Dates: start: 20210830, end: 2021
  2. CERTOLIZUMAB PEGOL [Suspect]
     Active Substance: CERTOLIZUMAB PEGOL
     Dosage: 400 MILLIGRAM, EV 4 WEEKS
     Route: 058
     Dates: start: 2021
  3. MUPIROCIN [Concomitant]
     Active Substance: MUPIROCIN
     Indication: Staphylococcal infection
     Dosage: UNK, 2X/DAY (BID)

REACTIONS (5)
  - Staphylococcal infection [Not Recovered/Not Resolved]
  - Pain [Not Recovered/Not Resolved]
  - Injection site pain [Recovered/Resolved]
  - Musculoskeletal stiffness [Not Recovered/Not Resolved]
  - Knee arthroplasty [Recovering/Resolving]

NARRATIVE: CASE EVENT DATE: 20210830
